FAERS Safety Report 4968228-X (Version None)
Quarter: 2006Q2

REPORT INFORMATION
  Report Type: 
  Country: None (occurrence: None)
  Receive Date: 20060405
  Receipt Date: 20060320
  Transmission Date: 20061013
  Serious: Yes (Life-Threatening, Hospitalization)
  Sender: FDA-Public Use
  Company Number: DSA_27935_2006

PATIENT
  Age: 20 Year
  Sex: Female

DRUGS (13)
  1. TAVOR /00273201/ [Suspect]
     Dosage: 1 MG Q DAY PO
     Route: 048
     Dates: start: 20060228, end: 20060303
  2. TAVOR /00273201/ [Suspect]
     Dosage: 1.5 MG Q DAY PO
     Route: 048
     Dates: start: 20060222, end: 20060227
  3. MIRTAZAPINE [Suspect]
     Dosage: 15 MG Q DAY PO
     Route: 048
     Dates: start: 20060301, end: 20060301
  4. MIRTAZAPINE [Suspect]
     Dosage: 30 MG Q DAY PO
     Route: 048
     Dates: start: 20060302, end: 20060303
  5. ZYPREXA [Suspect]
     Dosage: 10 MG Q DAY PO
     Route: 048
     Dates: start: 20060224, end: 20060303
  6. ZYPREXA [Suspect]
     Dosage: 5 MG Q DAY PO
     Route: 048
     Dates: start: 20060222, end: 20060223
  7. APONAL [Suspect]
     Dosage: 150 MG Q DAY PO
     Route: 048
     Dates: start: 20060227, end: 20060303
  8. APONAL [Suspect]
     Dosage: 125 MG Q DAY PO
     Route: 048
     Dates: start: 20060215, end: 20060226
  9. APONAL [Suspect]
     Dosage: 100 MG Q DAY PO
     Route: 048
     Dates: start: 20060210, end: 20060214
  10. APONAL [Suspect]
     Dosage: 50 MG Q DAY PO
     Route: 048
     Dates: start: 20060203, end: 20060209
  11. ZOPICLONE [Concomitant]
  12. L-THYROXINE [Concomitant]
  13. KALINOR [Concomitant]

REACTIONS (6)
  - ABDOMINAL PAIN UPPER [None]
  - ACTIVATED PARTIAL THROMBOPLASTIN TIME PROLONGED [None]
  - BLOOD CHOLINESTERASE INCREASED [None]
  - HEPATIC FAILURE [None]
  - NAUSEA [None]
  - VOMITING [None]
